FAERS Safety Report 22987126 (Version 2)
Quarter: 2024Q3

REPORT INFORMATION
  Report Type: Spontaneous
  Country: FR (occurrence: FR)
  Receive Date: 20230926
  Receipt Date: 20240812
  Transmission Date: 20241017
  Serious: Yes (Death, Other)
  Sender: OTSUKA
  Company Number: FR-ORGANON-O2309FRA002075

PATIENT
  Age: 53 Year
  Sex: Female

DRUGS (12)
  1. ABILIFY [Suspect]
     Active Substance: ARIPIPRAZOLE
     Indication: Depression
     Dosage: UNK
     Route: 065
     Dates: start: 20201212, end: 20201212
  2. PERICIAZINE [Suspect]
     Active Substance: PERICIAZINE
     Indication: Product used for unknown indication
     Dosage: UNK
     Route: 065
  3. QUETIAPINE FUMARATE [Suspect]
     Active Substance: QUETIAPINE FUMARATE
     Indication: Depression
     Dosage: UNK
     Route: 065
     Dates: start: 20201212, end: 20201212
  4. CLOBAZAM [Suspect]
     Active Substance: CLOBAZAM
     Indication: Depression
     Dosage: UNK
     Route: 065
     Dates: start: 20201212, end: 20201212
  5. PAROXETINE MESYLATE [Suspect]
     Active Substance: PAROXETINE MESYLATE
     Indication: Depression
     Dosage: UNK
     Route: 065
     Dates: start: 20201212, end: 20201212
  6. MIRTAZAPINE [Suspect]
     Active Substance: MIRTAZAPINE
     Indication: Depression
     Dosage: 3 TABLETS AT BEDTIME
     Route: 048
  7. MIRTAZAPINE [Suspect]
     Active Substance: MIRTAZAPINE
     Dosage: UNK
     Route: 065
     Dates: start: 20201212, end: 20201212
  8. LYRICA [Suspect]
     Active Substance: PREGABALIN
     Indication: Depression
     Dosage: UNK
     Route: 065
  9. LYRICA [Suspect]
     Active Substance: PREGABALIN
     Indication: Depression
     Dosage: 100 MG, BID
     Route: 065
     Dates: start: 20201212, end: 20201212
  10. BACLOFEN [Concomitant]
     Active Substance: BACLOFEN
     Indication: Alcoholism
     Dosage: UNK
     Route: 065
  11. NORDAZEPAM [Concomitant]
     Active Substance: NORDAZEPAM
     Indication: Depression
     Dosage: UNK
     Route: 065
  12. AMITRIPTYLINE HYDROCHLORIDE [Concomitant]
     Active Substance: AMITRIPTYLINE HYDROCHLORIDE
     Indication: Depression
     Dosage: UNK
     Route: 065

REACTIONS (8)
  - Haemorrhagic stroke [Fatal]
  - Cardiovascular disorder [Fatal]
  - Toxicity to various agents [Fatal]
  - Epistaxis [Fatal]
  - Drug dispensed to wrong patient [Fatal]
  - Product prescribing error [Fatal]
  - Wrong patient received product [Fatal]
  - Product use in unapproved indication [Unknown]

NARRATIVE: CASE EVENT DATE: 20201201
